FAERS Safety Report 23141468 (Version 2)
Quarter: 2025Q3

REPORT INFORMATION
  Report Type: Report from Study
  Country: ZA (occurrence: ZA)
  Receive Date: 20231103
  Receipt Date: 20250716
  Transmission Date: 20251020
  Serious: Yes (Hospitalization, Other)
  Sender: NOVARTIS
  Company Number: ZA-002147023-NVSC2023ZA189142

PATIENT
  Age: 39 Year
  Sex: Female

DRUGS (3)
  1. OFATUMUMAB [Suspect]
     Active Substance: OFATUMUMAB
     Indication: Relapsing-remitting multiple sclerosis
     Dosage: 20 MG, QW (INITIATED BONSPRI LOADING DOSE)
     Route: 058
     Dates: start: 20230827
  2. OFATUMUMAB [Suspect]
     Active Substance: OFATUMUMAB
     Dosage: 20 MG, QMO
     Route: 058
     Dates: start: 20230924
  3. OFATUMUMAB [Suspect]
     Active Substance: OFATUMUMAB
     Dosage: 20 MG, QMO
     Route: 058
     Dates: start: 20231024

REACTIONS (12)
  - Multiple sclerosis [Unknown]
  - Hemiparesis [Unknown]
  - Dysarthria [Unknown]
  - Hypoaesthesia [Unknown]
  - Muscular weakness [Unknown]
  - Feeling cold [Recovering/Resolving]
  - Pain [Recovering/Resolving]
  - Oropharyngeal pain [Recovering/Resolving]
  - Malaise [Recovering/Resolving]
  - Fatigue [Unknown]
  - Cough [Unknown]
  - Pyrexia [Recovering/Resolving]

NARRATIVE: CASE EVENT DATE: 20230827
